FAERS Safety Report 14992632 (Version 2)
Quarter: 2018Q4

REPORT INFORMATION
  Report Type: Spontaneous
  Country: ES (occurrence: ES)
  Receive Date: 20180609
  Receipt Date: 20181031
  Transmission Date: 20190204
  Serious: Yes (Other)
  Sender: FDA-Public Use
  Company Number: ES-AUROBINDO-AUR-APL-2018-029960

PATIENT
  Age: 38 Year
  Sex: Female

DRUGS (3)
  1. QUETIAPINE. [Suspect]
     Active Substance: QUETIAPINE
     Indication: BIPOLAR DISORDER
     Dosage: 600 MILLIGRAM, ONCE A DAY, 600 MG, QD
     Route: 065
  2. LITHIUM. [Interacting]
     Active Substance: LITHIUM
     Indication: BIPOLAR DISORDER
     Dosage: UNK
     Route: 065
  3. VALPROIC ACID. [Interacting]
     Active Substance: VALPROIC ACID
     Indication: BIPOLAR DISORDER
     Dosage: 500 MILLIGRAM, ONCE A DAY, 500 MG, QD
     Route: 065

REACTIONS (2)
  - Drug interaction [Unknown]
  - Disorientation [Recovered/Resolved]
